FAERS Safety Report 7648042-7 (Version None)
Quarter: 2011Q3

REPORT INFORMATION
  Report Type: 
  Country: None (occurrence: None)
  Receive Date: 20110801
  Receipt Date: 20110719
  Transmission Date: 20111222
  Serious: Yes (Other)
  Sender: FDA-Public Use
  Company Number: US-BAYER-2011-023452

PATIENT
  Age: 33 Year
  Sex: Female
  Weight: 61.224 kg

DRUGS (12)
  1. EXCEDRIN (MIGRAINE) [Concomitant]
     Indication: MIGRAINE
  2. SERTRALINE HYDROCHLORIDE [Concomitant]
     Dosage: 50 MG, UNK
     Dates: start: 20070207
  3. YASMIN [Suspect]
     Indication: ACNE
  4. OMEPRAZOLE [Concomitant]
     Dosage: 20 MG, UNK
     Dates: start: 20070327
  5. DROSPIRENONE AND ETHINYL ESTRADIOL [Suspect]
     Indication: CONTRACEPTION
     Dosage: UNK, QD
     Dates: start: 20061001, end: 20090401
  6. DROSPIRENONE AND ETHINYL ESTRADIOL [Suspect]
     Indication: ACNE
  7. TRAZODONE HYDROCHLORIDE [Concomitant]
     Dosage: 50 MG, UNK
     Dates: start: 20070207
  8. YASMIN [Suspect]
     Indication: CONTRACEPTION
     Dosage: UNK UNK, QD
     Dates: start: 20061001, end: 20090401
  9. ZOMIG-ZMT [Concomitant]
     Dosage: 2.5 MG, UNK
     Dates: start: 20070207
  10. EXCEDRIN (MIGRAINE) [Concomitant]
     Indication: HEADACHE
     Dosage: 1 +#8211; 2 PILLS PER DAY ON VARIOUS DATES
     Dates: start: 20040101, end: 20080101
  11. TETRACYCLINE [Concomitant]
     Dosage: 500 MG, UNK
     Dates: start: 20070205
  12. CIPROFLAXACIN [Concomitant]
     Dosage: 500 MG, UNK
     Dates: start: 20070513

REACTIONS (3)
  - CHOLELITHIASIS [None]
  - DYSPEPSIA [None]
  - CHOLECYSTITIS CHRONIC [None]
